FAERS Safety Report 24940808 (Version 2)
Quarter: 2025Q1

REPORT INFORMATION
  Report Type: Report from Study
  Country: CO (occurrence: CO)
  Receive Date: 20250207
  Receipt Date: 20250317
  Transmission Date: 20250408
  Serious: Yes (Hospitalization)
  Sender: ROCHE
  Company Number: CO-ROCHE-10000199690

PATIENT
  Age: 47 Year
  Sex: Female
  Weight: 46 kg

DRUGS (4)
  1. HERCEPTIN [Suspect]
     Active Substance: TRASTUZUMAB
     Indication: Breast cancer
     Dosage: DOSE WAS ASKED BUT UNKNOWN
     Route: 042
     Dates: start: 202403
  2. EMTRICITABINE [Concomitant]
     Active Substance: EMTRICITABINE
  3. SULFAMETHOXAZOLE\TRIMETHOPRIM [Concomitant]
     Active Substance: SULFAMETHOXAZOLE\TRIMETHOPRIM
     Dates: start: 20250128
  4. DOLUTEGRAVIR [Concomitant]
     Active Substance: DOLUTEGRAVIR

REACTIONS (4)
  - Platelet count decreased [Unknown]
  - Central nervous system infection [Unknown]
  - Meningitis cryptococcal [Unknown]
  - Acquired immunodeficiency syndrome [Unknown]
